FAERS Safety Report 5333997-6 (Version None)
Quarter: 2007Q2

REPORT INFORMATION
  Report Type: 
  Country: None (occurrence: None)
  Receive Date: 20070524
  Receipt Date: 20070514
  Transmission Date: 20071010
  Serious: Yes (Other)
  Sender: FDA-Public Use
  Company Number: US-PFIZER INC-2007039262

PATIENT
  Sex: Female
  Weight: 68.181 kg

DRUGS (3)
  1. CHANTIX [Suspect]
     Indication: SMOKING CESSATION THERAPY
     Dosage: FREQ:DAILY
     Dates: start: 20070507, end: 20070511
  2. ALL OTHER THERAPEUTIC PRODUCTS [Concomitant]
  3. PREDNISONE TAB [Concomitant]

REACTIONS (7)
  - ABASIA [None]
  - ASTHENIA [None]
  - EXTRAOCULAR MUSCLE DISORDER [None]
  - HYPERSENSITIVITY [None]
  - INSOMNIA [None]
  - MALAISE [None]
  - SOMNOLENCE [None]
